FAERS Safety Report 24002149 (Version 2)
Quarter: 2024Q3

REPORT INFORMATION
  Report Type: Spontaneous
  Country: JP (occurrence: JP)
  Receive Date: 20240622
  Receipt Date: 20240703
  Transmission Date: 20241017
  Serious: Yes (Other)
  Sender: ABBVIE
  Company Number: JP-LUNDBECK-DKLU3040755

PATIENT
  Sex: Female

DRUGS (5)
  1. LEXAPRO [Suspect]
     Active Substance: ESCITALOPRAM OXALATE
     Indication: Depression
     Dosage: DAILY DOSE: 20.0 MG, FORM: UNKNOWN
     Route: 048
     Dates: end: 20211101
  2. LEXAPRO [Suspect]
     Active Substance: ESCITALOPRAM OXALATE
     Indication: Depression
     Dosage: OVERDOSE: 40MG ONCE DAILY
     Route: 048
  3. CHLORPROMAZINE [Concomitant]
     Active Substance: CHLORPROMAZINE
     Indication: Depression
     Dosage: DAILY DOSE: 25.0 MG, TOTAL: 25.0 MG
     Route: 048
     Dates: start: 20211031, end: 20211101
  4. ZOLPIDEM TARTRATE [Concomitant]
     Active Substance: ZOLPIDEM TARTRATE
     Indication: Depression
     Dosage: DAILY DOSE: 5.0 MG
     Route: 048
     Dates: start: 20211031, end: 20211101
  5. DAYVIGO [Concomitant]
     Active Substance: LEMBOREXANT
     Indication: Product used for unknown indication
     Dosage: DAILY DOSE: 5.0 MG
     Route: 065
     Dates: end: 20211031

REACTIONS (3)
  - Amniotic cavity infection [Unknown]
  - Exposure during pregnancy [Unknown]
  - Overdose [Unknown]
